FAERS Safety Report 9472703 (Version 6)
Quarter: 2015Q2

REPORT INFORMATION
  Report Type: Report from Study
  Country: US (occurrence: US)
  Receive Date: 20130823
  Receipt Date: 20150408
  Transmission Date: 20150821
  Serious: Yes (Hospitalization)
  Sender: FDA-Public Use
  Company Number: US-SANOFI-AVENTIS-2013SA084002

PATIENT
  Age: 45 Year
  Sex: Female

DRUGS (3)
  1. AUBAGIO [Suspect]
     Active Substance: TERIFLUNOMIDE
     Indication: SECONDARY PROGRESSIVE MULTIPLE SCLEROSIS
     Route: 048
     Dates: start: 20130312
  2. AUBAGIO [Suspect]
     Active Substance: TERIFLUNOMIDE
     Indication: SECONDARY PROGRESSIVE MULTIPLE SCLEROSIS
     Route: 048
  3. NEURONTIN [Concomitant]
     Active Substance: GABAPENTIN

REACTIONS (19)
  - Anxiety [Unknown]
  - Memory impairment [Unknown]
  - Contusion [Unknown]
  - Speech disorder [Unknown]
  - Migraine [Unknown]
  - Vision blurred [Unknown]
  - Abdominal discomfort [Not Recovered/Not Resolved]
  - Multiple sclerosis [Not Recovered/Not Resolved]
  - Deep vein thrombosis [Unknown]
  - Pain [Not Recovered/Not Resolved]
  - Neuralgia [Unknown]
  - Thinking abnormal [Unknown]
  - Drug dose omission [Unknown]
  - Depression [Not Recovered/Not Resolved]
  - Muscle spasms [Unknown]
  - Seizure [Unknown]
  - Multiple sclerosis relapse [Unknown]
  - Gait disturbance [Unknown]
  - Weight increased [Unknown]
